FAERS Safety Report 9349602 (Version 2)
Quarter: 2013Q4

REPORT INFORMATION
  Report Type: Report from Study
  Country: JP (occurrence: JP)
  Receive Date: 20130614
  Receipt Date: 20131028
  Transmission Date: 20140711
  Serious: Yes (Other)
  Sender: FDA-Public Use
  Company Number: JP-009507513-1305JPN007470

PATIENT
  Age: 29 Year
  Sex: Female

DRUGS (7)
  1. GANIRELIX ACETATE [Suspect]
     Indication: PREVENTION OF PREMATURE OVULATION
     Dosage: 0.25 MG, QD
     Route: 058
     Dates: start: 20110618, end: 20110620
  2. FOLLISTIM INJECTION 50 [Concomitant]
     Indication: IN VITRO FERTILISATION
     Dosage: 450 UNIT, QD
     Route: 058
     Dates: start: 20110613, end: 20110614
  3. FOLLISTIM INJECTION 50 [Concomitant]
     Dosage: 225 UNIT, QD
     Route: 058
     Dates: start: 20110615, end: 20110617
  4. MENOTROPINS [Concomitant]
     Indication: IN VITRO FERTILISATION
     Dosage: 225 IU, QD
     Route: 030
     Dates: start: 20110618, end: 20110621
  5. GONADOTROPIN, CHORIONIC [Concomitant]
     Indication: OVULATION INDUCTION
     Dosage: 5 THOUSAND-MILLION UNIT, 1/1DAY
     Route: 030
     Dates: start: 20110621, end: 20110621
  6. LUTORAL (CHLORMADINONE ACETATE) [Concomitant]
     Indication: IN VITRO FERTILISATION
     Dosage: 6 MG, DIVIDED DOSE FREQUENCY UNKNOWN/DAY
     Route: 048
     Dates: start: 20110815, end: 20110826
  7. PROGESTON [Concomitant]
     Indication: IN VITRO FERTILISATION
     Dosage: 125 MG, DIVIDED DOSE FREQUENCY UNKNOWN/DAY
     Route: 030
     Dates: start: 20110815, end: 20110815

REACTIONS (1)
  - Foetal death [Recovered/Resolved]
